FAERS Safety Report 8428477-5 (Version None)
Quarter: 2012Q2

REPORT INFORMATION
  Report Type: 
  Country: None (occurrence: None)
  Receive Date: 20120612
  Receipt Date: 20120608
  Transmission Date: 20120825
  Serious: No
  Sender: FDA-Public Use
  Company Number: US-PFIZER INC-2012124732

PATIENT
  Sex: Male

DRUGS (3)
  1. SILODOSIN [Suspect]
     Indication: BENIGN PROSTATIC HYPERPLASIA
     Dosage: 1 PILL,  QD
     Route: 048
     Dates: start: 20120201, end: 20120501
  2. VIAGRA [Suspect]
     Dosage: UNK
     Route: 048
  3. SILODOSIN [Suspect]
     Indication: POLLAKIURIA

REACTIONS (2)
  - RETROGRADE EJACULATION [None]
  - ERECTILE DYSFUNCTION [None]
